FAERS Safety Report 10156625 (Version 1)
Quarter: 2014Q2

REPORT INFORMATION
  Report Type: Spontaneous
  Country: US (occurrence: None)
  Receive Date: 20140506
  Receipt Date: 20140506
  Transmission Date: 20141212
  Serious: Yes (Hospitalization)
  Sender: FDA-Public Use
  Company Number: None

PATIENT
  Age: 7 Year
  Sex: Male
  Weight: 36 kg

DRUGS (5)
  1. DENOSUMAB 120MG/1.7 ML [Suspect]
     Dosage: 1.2MG/KG DOSE TO START; ESCALATED DOSING
     Route: 058
     Dates: start: 20120927, end: 20131216
  2. GABAPENTIN [Concomitant]
  3. MIRALAX [Concomitant]
  4. NORCO [Concomitant]
  5. ONDANSETRON [Concomitant]

REACTIONS (5)
  - Vomiting [None]
  - Headache [None]
  - Hypertension [None]
  - Hypercalcaemia [None]
  - Blood creatinine increased [None]
